FAERS Safety Report 4506068-6 (Version None)
Quarter: 2004Q4

REPORT INFORMATION
  Report Type: 
  Country: None (occurrence: None)
  Receive Date: 20041025
  Receipt Date: 20040507
  Transmission Date: 20050328
  Serious: Yes (Hospitalization)
  Sender: FDA-Public Use
  Company Number: US-JNJFOC-20040501861

PATIENT
  Age: 57 Year
  Sex: Female

DRUGS (5)
  1. INFLIXIMAB (INFLIXIMAB, RECOMBINANT) LYOPHILIZED POWDER [Suspect]
     Indication: RHEUMATOID ARTHRITIS
     Dosage: INTRAVENOUS
     Route: 042
     Dates: start: 20011101
  2. PLAQUENIL [Concomitant]
  3. MAXIDE (DYAZIDE) [Concomitant]
  4. REGLAN [Concomitant]
  5. NEXIUM [Concomitant]

REACTIONS (2)
  - PYELONEPHRITIS [None]
  - RENAL CYST [None]
